FAERS Safety Report 26178325 (Version 1)
Quarter: 2025Q4

REPORT INFORMATION
  Report Type: Spontaneous
  Country: US (occurrence: US)
  Receive Date: 20251219
  Receipt Date: 20251219
  Transmission Date: 20260118
  Serious: Yes (Other)
  Sender: AMGEN
  Company Number: US-AMGEN-USASP2025244589

PATIENT
  Age: 74 Year
  Sex: Female

DRUGS (4)
  1. PREDNISONE [Suspect]
     Active Substance: PREDNISONE
     Indication: Glomerulonephritis membranoproliferative
     Dosage: UNK
     Route: 065
  2. PREDNISONE [Suspect]
     Active Substance: PREDNISONE
     Indication: Cryoglobulinaemia
  3. PREDNISONE [Suspect]
     Active Substance: PREDNISONE
     Indication: Glomerulonephritis
  4. CYCLOPHOSPHAMIDE [Concomitant]
     Active Substance: CYCLOPHOSPHAMIDE
     Indication: Glomerulonephritis membranoproliferative

REACTIONS (3)
  - Waldenstrom^s macroglobulinaemia [Unknown]
  - Drug effective for unapproved indication [Unknown]
  - Off label use [Unknown]
